FAERS Safety Report 20639184 (Version 1)
Quarter: 2022Q1

REPORT INFORMATION
  Report Type: Spontaneous
  Country: CN (occurrence: None)
  Receive Date: 20220326
  Receipt Date: 20220326
  Transmission Date: 20220423
  Serious: Yes (Death)
  Sender: FDA-Public Use
  Company Number: 2022A125362

PATIENT
  Age: 60 Year
  Sex: Male

DRUGS (8)
  1. SAXAGLIPTIN [Suspect]
     Active Substance: SAXAGLIPTIN
     Route: 048
  2. BROMHEXINE [Concomitant]
     Active Substance: BROMHEXINE
  3. METHYLPREDNISOLONE [Concomitant]
     Active Substance: METHYLPREDNISOLONE
  4. DOXOFYLLINE [Concomitant]
     Active Substance: DOXOFYLLINE
  5. BUDESONIDE [Concomitant]
     Active Substance: BUDESONIDE
  6. TERBUTALINE [Concomitant]
     Active Substance: TERBUTALINE
  7. IPRATROPIUM BROMIDE [Concomitant]
     Active Substance: IPRATROPIUM BROMIDE
  8. PHOSPHOLIPID [Concomitant]
     Active Substance: PHOSPHOLIPID

REACTIONS (1)
  - Anaphylactic shock [Fatal]
